FAERS Safety Report 22818499 (Version 3)
Quarter: 2024Q2

REPORT INFORMATION
  Report Type: Spontaneous
  Country: NL (occurrence: NL)
  Receive Date: 20230814
  Receipt Date: 20240401
  Transmission Date: 20240716
  Serious: Yes (Death, Life-Threatening, Hospitalization, Other)
  Sender: FDA-Public Use
  Company Number: NL-NOVOPROD-1101616

PATIENT
  Age: 55 Year
  Sex: Female
  Weight: 125 kg

DRUGS (14)
  1. RYBELSUS [Suspect]
     Active Substance: SEMAGLUTIDE
     Indication: Product used for unknown indication
     Dosage: 30 TABLETS OF 14 MG
     Route: 048
  2. METFORMIN [Suspect]
     Active Substance: METFORMIN HYDROCHLORIDE
     Indication: Product used for unknown indication
     Dosage: 165 DOSAGE FORM, (82.5 G, OR 660 MG/KG)
     Route: 048
  3. METFORMIN [Suspect]
     Active Substance: METFORMIN HYDROCHLORIDE
     Dosage: 165 DOSAGE FORM, UNKNOWN
     Route: 042
  4. ACETAMINOPHEN [Suspect]
     Active Substance: ACETAMINOPHEN
     Dosage: 20 TABLETS OF ACETAMINOPHEN 500 MG (10 G, OR 80
     Route: 048
  5. ACETAMINOPHEN [Suspect]
     Active Substance: ACETAMINOPHEN
     Indication: Product used for unknown indication
     Dosage: 20 DOSAGE FORM,(10 G, OR 80 MG/KG)
     Route: 042
  6. SIMVASTATIN [Suspect]
     Active Substance: SIMVASTATIN
     Dosage: 38 TABLETS OF 40 MG
     Route: 048
  7. SIMVASTATIN [Suspect]
     Active Substance: SIMVASTATIN
     Indication: Product used for unknown indication
     Dosage: 40 MG (1520 MG, OR 12 MG/KG)
     Route: 048
  8. NOREPINEPHRINE [Concomitant]
     Active Substance: NOREPINEPHRINE\NOREPINEPHRINE BITARTRATE
     Dosage: UNK0.25 ?G/KG/MIN. AFTER SECOND 2 MG/KG
  9. NOREPINEPHRINE [Concomitant]
     Active Substance: NOREPINEPHRINE\NOREPINEPHRINE BITARTRATE
     Indication: Vasoplegia syndrome
     Dosage: 0 TO 1.2 ?G/KG/MIN (INCREASING RAPIDELY)
  10. NOREPINEPHRINE [Concomitant]
     Active Substance: NOREPINEPHRINE\NOREPINEPHRINE BITARTRATE
     Dosage: 0.5 ?G/KG/MIN (15 MIN AFTER FIRST INJ) FOR 6 H
  11. METHYLENE BLUE [Suspect]
     Active Substance: METHYLENE BLUE
     Dosage: 250 MILLIGRAM, 2 MG/KG
     Route: 042
  12. METHYLENE BLUE [Suspect]
     Active Substance: METHYLENE BLUE
     Indication: Vasoplegia syndrome
     Dosage: 2 MILLIGRAM/KILOGRAM,6 HOURS AFTER FIRST ONE
     Route: 042
  13. HYDROCORTISONE [Concomitant]
     Active Substance: HYDROCORTISONE
     Indication: Vasoplegia syndrome
     Dosage: UNK
  14. VASOPRESSIN [Concomitant]
     Active Substance: VASOPRESSIN
     Indication: Vasoplegia syndrome
     Dosage: 0.03 IE/MIN

REACTIONS (13)
  - Completed suicide [Fatal]
  - Hepatic necrosis [Fatal]
  - Lactic acidosis [Fatal]
  - Distributive shock [Fatal]
  - Toxicity to various agents [Fatal]
  - Hypoglycaemia [Unknown]
  - Intentional overdose [Fatal]
  - Hepatic ischaemia [Unknown]
  - Drug abuse [Unknown]
  - Chromaturia [Unknown]
  - Faeces discoloured [Unknown]
  - Condition aggravated [Unknown]
  - Skin discolouration [Unknown]
